FAERS Safety Report 7407039-2 (Version None)
Quarter: 2011Q2

REPORT INFORMATION
  Report Type: 
  Country: None (occurrence: None)
  Receive Date: 20110411
  Receipt Date: 20110406
  Transmission Date: 20111010
  Serious: Yes (Hospitalization, Other)
  Sender: FDA-Public Use
  Company Number: IT-AMGEN-UK307516

PATIENT
  Age: 53 Year
  Sex: Female

DRUGS (9)
  1. GRANULOKINE [Suspect]
     Dosage: 300 MG, 2 TIMES/WK
  2. GRANULOKINE [Suspect]
     Dosage: 60 IU, QCYCLE
     Route: 058
     Dates: start: 20080101, end: 20080401
  3. GRANULOKINE [Suspect]
     Dosage: 3000 MG, 3 TIMES/WK
  4. RIBAVIRIN [Suspect]
     Indication: CHRONIC HEPATITIS
     Dosage: 800 MG, QD
     Route: 048
  5. PEGINTERFERON ALFA-2A [Suspect]
     Indication: CHRONIC HEPATITIS
     Dosage: 180 MG, QWK
     Route: 058
     Dates: start: 20070505, end: 20080401
  6. INTERFERON ALFA [Suspect]
     Indication: CHRONIC HEPATITIS
  7. RIBAVIRIN [Suspect]
     Dosage: 1000 MG, QD
  8. PEGINTERFERON ALFA-2A [Suspect]
     Dosage: 135 UNK, QWK
  9. RIBAVIRIN [Suspect]
     Dosage: 600 MG, QD

REACTIONS (5)
  - NEUTROPENIA [None]
  - THROMBOCYTOPENIA [None]
  - PSORIASIS [None]
  - GRANULOCYTOPENIA [None]
  - LEUKOPENIA [None]
